FAERS Safety Report 6407614-8 (Version None)
Quarter: 2009Q4

REPORT INFORMATION
  Report Type: 
  Country: None (occurrence: None)
  Receive Date: 20091020
  Receipt Date: 20091013
  Transmission Date: 20100525
  Serious: No
  Sender: FDA-Public Use
  Company Number: US-B.I. PHARMACEUTICALS,INC./RIDGEFIELD-2009-BP-11988BP

PATIENT
  Sex: Male

DRUGS (4)
  1. SPIRIVA [Suspect]
     Dates: start: 20090901
  2. RANITIDINE [Concomitant]
     Dates: start: 20090201
  3. SIMVASTATIN [Concomitant]
     Dates: start: 20080101
  4. ATENOLOL [Concomitant]
     Dates: start: 20080101

REACTIONS (1)
  - AMPHETAMINES POSITIVE [None]
